FAERS Safety Report 7415817-9 (Version None)
Quarter: 2011Q2

REPORT INFORMATION
  Report Type: 
  Country: None (occurrence: None)
  Receive Date: 20110414
  Receipt Date: 20110403
  Transmission Date: 20111010
  Serious: Yes (Death)
  Sender: FDA-Public Use
  Company Number: IR-GENENTECH-310466

PATIENT
  Sex: Female

DRUGS (2)
  1. MABTHERA [Suspect]
     Indication: SYSTEMIC LUPUS ERYTHEMATOSUS
     Dosage: UNK
     Route: 042
     Dates: start: 20100902, end: 20100902
  2. MABTHERA [Suspect]
     Dosage: UNK
     Route: 042
     Dates: start: 20100901

REACTIONS (8)
  - RESPIRATORY DISTRESS [None]
  - PROTEINURIA [None]
  - CHILLS [None]
  - COUGH [None]
  - CARDIAC FAILURE [None]
  - BLOOD CREATININE INCREASED [None]
  - SYSTEMIC LUPUS ERYTHEMATOSUS [None]
  - PYREXIA [None]
